FAERS Safety Report 21631439 (Version 1)
Quarter: 2022Q4

REPORT INFORMATION
  Report Type: Spontaneous
  Country: ES (occurrence: ES)
  Receive Date: 20221123
  Receipt Date: 20221123
  Transmission Date: 20230112
  Serious: Yes (Hospitalization, Other)
  Sender: FDA-Public Use
  Company Number: None

PATIENT
  Age: 70 Year
  Sex: Female

DRUGS (2)
  1. TRIAMCINOLONE ACETONIDE [Suspect]
     Active Substance: TRIAMCINOLONE ACETONIDE
     Indication: Sciatica
     Dosage: UNK
     Route: 050
     Dates: start: 20220905, end: 20220905
  2. BUPIVACAINE [Suspect]
     Active Substance: BUPIVACAINE
     Indication: Back pain
     Dosage: UNK
     Route: 050
     Dates: start: 20220905, end: 20220905

REACTIONS (1)
  - Acute generalised exanthematous pustulosis [Recovered/Resolved]
